FAERS Safety Report 4678157-7 (Version None)
Quarter: 2005Q2

REPORT INFORMATION
  Report Type: 
  Country: None (occurrence: None)
  Receive Date: 20050527
  Receipt Date: 20050516
  Transmission Date: 20051028
  Serious: Yes (Other)
  Sender: FDA-Public Use
  Company Number: 2005075795

PATIENT
  Sex: Female

DRUGS (3)
  1. UNASYN [Suspect]
     Indication: PNEUMONIA
     Dosage: INTRAVENOUS
     Dates: start: 20050101, end: 20050101
  2. UNASYN [Suspect]
     Indication: URINARY TRACT INFECTION
     Dosage: INTRAVENOUS
     Dates: start: 20050101, end: 20050101
  3. XYLOCAINE [Suspect]
     Indication: ILL-DEFINED DISORDER

REACTIONS (6)
  - ALANINE AMINOTRANSFERASE INCREASED [None]
  - ASPARTATE AMINOTRANSFERASE INCREASED [None]
  - PNEUMONIA [None]
  - POSTOPERATIVE FEVER [None]
  - STEVENS-JOHNSON SYNDROME [None]
  - URINARY TRACT INFECTION [None]
